FAERS Safety Report 7941192-7 (Version None)
Quarter: 2011Q4

REPORT INFORMATION
  Report Type: 
  Country: None (occurrence: None)
  Receive Date: 20111122
  Receipt Date: 20111003
  Transmission Date: 20120403
  Serious: Yes (Hospitalization)
  Sender: FDA-Public Use
  Company Number: ELC0001

PATIENT
  Sex: Female

DRUGS (2)
  1. SALICYLIC ACID 2% SEE OTHER REMARKS [Suspect]
  2. BENZOYL PEROXIDE 2.5% OR SALICYCLIC ACID 2% SEE OTHER REMARKS [Suspect]

REACTIONS (1)
  - DERMATITIS CONTACT [None]
